FAERS Safety Report 4383501-4 (Version None)
Quarter: 2004Q2

REPORT INFORMATION
  Report Type: 
  Country: None (occurrence: None)
  Receive Date: 20040623
  Receipt Date: 20040607
  Transmission Date: 20050107
  Serious: Yes (Hospitalization)
  Sender: FDA-Public Use
  Company Number: PHEH2004US06289

PATIENT

DRUGS (1)
  1. ZELNORM [Suspect]

REACTIONS (2)
  - HYPOKALAEMIA [None]
  - HYPOVOLAEMIA [None]
